FAERS Safety Report 5051011-7 (Version None)
Quarter: 2006Q3

REPORT INFORMATION
  Report Type: 
  Country: None (occurrence: None)
  Receive Date: 20060714
  Receipt Date: 20060711
  Transmission Date: 20061208
  Serious: Yes (Life-Threatening)
  Sender: FDA-Public Use
  Company Number: 2006PK01480

PATIENT
  Age: 20066 Day
  Sex: Male
  Weight: 75 kg

DRUGS (3)
  1. ASCOTOP [Suspect]
     Indication: MIGRAINE
     Route: 048
     Dates: start: 20060215, end: 20060218
  2. ASCOTOP [Interacting]
     Route: 048
     Dates: start: 20060514
  3. ARCOXIA [Interacting]
     Indication: OSTEOARTHRITIS

REACTIONS (4)
  - ABDOMINAL PAIN [None]
  - COLITIS ISCHAEMIC [None]
  - DRUG INTERACTION [None]
  - VASOCONSTRICTION [None]
